FAERS Safety Report 10787382 (Version 1)
Quarter: 2015Q1

REPORT INFORMATION
  Report Type: Report from Study
  Country: US (occurrence: US)
  Receive Date: 20150212
  Receipt Date: 20150212
  Transmission Date: 20150721
  Serious: No
  Sender: FDA-Public Use
  Company Number: US-AMGEN-USASL2015010131

PATIENT
  Age: 19 Year
  Sex: Male

DRUGS (4)
  1. SALEX                              /00008507/ [Concomitant]
     Dosage: UNK
  2. ENBREL [Suspect]
     Active Substance: ETANERCEPT
     Indication: PSORIASIS
     Dosage: 50 MG, 2 TIMES/WK
     Route: 058
     Dates: start: 201310, end: 201501
  3. CLOBEX                             /00012002/ [Concomitant]
     Dosage: UNK
  4. ASPIRIN                            /00002701/ [Concomitant]
     Active Substance: ASPIRIN
     Dosage: UNK

REACTIONS (2)
  - Laboratory test abnormal [Not Recovered/Not Resolved]
  - Hepatic enzyme increased [Unknown]
